FAERS Safety Report 8974274 (Version 1)
Quarter: 2012Q4

REPORT INFORMATION
  Report Type: Spontaneous
  Country: US (occurrence: None)
  Receive Date: 20121217
  Receipt Date: 20121217
  Transmission Date: 20130627
  Serious: Yes (Death)
  Sender: FDA-Public Use
  Company Number: None

PATIENT
  Age: 66 Year
  Sex: Female
  Weight: 54.43 kg

DRUGS (2)
  1. REQUIP XL [Suspect]
     Route: 048
     Dates: start: 20081001, end: 20121012
  2. INVESTIGATIONAL DRUG [Suspect]
     Dates: start: 20110808, end: 20121012

REACTIONS (3)
  - Ovarian cancer [None]
  - Colon cancer stage IV [None]
  - Ascites [None]
